FAERS Safety Report 14546764 (Version 1)
Quarter: 2018Q1

REPORT INFORMATION
  Report Type: Spontaneous
  Country: US (occurrence: US)
  Receive Date: 20180219
  Receipt Date: 20180219
  Transmission Date: 20180509
  Serious: Yes (Hospitalization)
  Sender: FDA-Public Use
  Company Number: US-SCIEGEN PHARMACEUTICALS INC-2018SCILIT00090

PATIENT

DRUGS (24)
  1. CLONIDINE. [Suspect]
     Active Substance: CLONIDINE
     Indication: NEURITIS
     Dosage: 0.6 %, UNK
     Route: 067
  2. LORATADINE. [Concomitant]
     Active Substance: LORATADINE
     Indication: HYPERSENSITIVITY
     Dosage: 10 MG, QD AS NEEDED
     Route: 065
  3. SERTRALINE [Concomitant]
     Active Substance: SERTRALINE HYDROCHLORIDE
     Indication: PRODUCT USED FOR UNKNOWN INDICATION
     Dosage: 100 MG, UNK
     Route: 065
  4. KETAMINE [Suspect]
     Active Substance: KETAMINE
     Indication: VULVOVAGINAL PRURITUS
     Dosage: 10 %
     Route: 067
  5. KETAMINE [Suspect]
     Active Substance: KETAMINE
     Indication: NEURITIS
  6. LIOTHYRONINE [Concomitant]
     Active Substance: LIOTHYRONINE
     Indication: PRODUCT USED FOR UNKNOWN INDICATION
     Dosage: 5 MCG, DAILY
     Route: 065
  7. OXCYCODONE/ ACETAMINOPHEN [Concomitant]
     Indication: PAIN
     Dosage: 5/325 MG (EVERY 8 HOURS AS NEEDED)
     Route: 065
  8. GABAPENTIN TABLETS,USP [Suspect]
     Active Substance: GABAPENTIN
     Indication: VULVOVAGINAL PRURITUS
     Dosage: UNK
     Route: 067
  9. LORAZEPAM. [Concomitant]
     Active Substance: LORAZEPAM
     Indication: PRODUCT USED FOR UNKNOWN INDICATION
     Dosage: 0.5 MG, BID
     Route: 065
  10. GABAPENTIN TABLETS,USP [Suspect]
     Active Substance: GABAPENTIN
     Indication: NEURITIS
  11. LIDOCAINE. [Suspect]
     Active Substance: LIDOCAINE
     Indication: VULVOVAGINAL PRURITUS
     Dosage: 3 %, UNK
     Route: 067
  12. LIDOCAINE. [Suspect]
     Active Substance: LIDOCAINE
     Indication: NEURITIS
  13. CALCIUM PLUS VITAMIN D [Concomitant]
     Active Substance: CALCIUM\VITAMIN D
     Dosage: 400 IU, BID
     Route: 065
  14. CONJUGATED ESTROGEN [Concomitant]
     Active Substance: ESTROGENS, CONJUGATED
     Indication: PRODUCT USED FOR UNKNOWN INDICATION
     Dosage: 0.625 MG, BID
     Route: 067
  15. PREGABALIN. [Concomitant]
     Active Substance: PREGABALIN
     Indication: PRODUCT USED FOR UNKNOWN INDICATION
     Dosage: 75 MG (NIGHTLY)
     Route: 065
  16. CALCIUM PLUS VITAMIN D [Concomitant]
     Active Substance: CALCIUM\VITAMIN D
     Indication: PRODUCT USED FOR UNKNOWN INDICATION
     Dosage: 600 MG, BID
     Route: 065
  17. NAPROXEN. [Concomitant]
     Active Substance: NAPROXEN
     Indication: PAIN
     Dosage: 250 MG, BID
     Route: 065
  18. OLOPATADINE. [Concomitant]
     Active Substance: OLOPATADINE
     Indication: PRODUCT USED FOR UNKNOWN INDICATION
     Dosage: 0.1 %, BID (1 DROP IN EACH EYE TWICE DAILY)
     Route: 065
  19. KETOPROFEN. [Suspect]
     Active Substance: KETOPROFEN
     Indication: VULVOVAGINAL PRURITUS
     Dosage: 10 %
     Route: 067
  20. RISPERIDONE. [Concomitant]
     Active Substance: RISPERIDONE
     Indication: PRODUCT USED FOR UNKNOWN INDICATION
     Dosage: 0.5 MG (EVERY 8 HOURS) AS NEEDED
     Route: 065
  21. KETOPROFEN. [Suspect]
     Active Substance: KETOPROFEN
     Indication: NEURITIS
  22. CLONIDINE. [Suspect]
     Active Substance: CLONIDINE
     Indication: VULVOVAGINAL PRURITUS
  23. LEVOTHYROXINE. [Concomitant]
     Active Substance: LEVOTHYROXINE
     Indication: PRODUCT USED FOR UNKNOWN INDICATION
     Dosage: 225 MICROGRAM INDIVIDED DOSE
     Route: 065
  24. DONEPEZIL. [Concomitant]
     Active Substance: DONEPEZIL
     Indication: PRODUCT USED FOR UNKNOWN INDICATION
     Dosage: 10 MG, QD (NIGHTLY)
     Route: 065

REACTIONS (6)
  - Mental status changes [Recovering/Resolving]
  - Attention deficit/hyperactivity disorder [Recovering/Resolving]
  - Delirium [Recovered/Resolved]
  - Product use in unapproved indication [Unknown]
  - Homicidal ideation [Recovered/Resolved]
  - Suicidal ideation [Unknown]
